FAERS Safety Report 8338280-2 (Version None)
Quarter: 2012Q2

REPORT INFORMATION
  Report Type: 
  Country: None (occurrence: None)
  Receive Date: 20120504
  Receipt Date: 20120426
  Transmission Date: 20120825
  Serious: Yes (Other)
  Sender: FDA-Public Use
  Company Number: PHHY2012FR023783

PATIENT
  Age: 87 Year
  Sex: Female
  Weight: 46 kg

DRUGS (9)
  1. NEBIVOLOL HCL [Concomitant]
     Dosage: UNK UKN, UNK
  2. VALSARTAN [Suspect]
     Indication: HYPERTENSION
     Dosage: 120 MG, DAILY (1DF OF TAREG 40MG AND 1 DF OF TAREG 80MG)
     Dates: end: 20120223
  3. LERCANIDIPINE [Concomitant]
     Dosage: UNK
  4. ASPIRIN [Concomitant]
     Indication: CORONARY ARTERY DISEASE
  5. VALSARTAN [Suspect]
     Dosage: 40 MG, DAILY
     Dates: start: 20120317
  6. VALSARTAN [Suspect]
     Dosage: 160 MG, DAILY
  7. VALSARTAN [Suspect]
     Dosage: 140 MG, DAILY
     Dates: start: 20120224, end: 20120316
  8. CORVASAL [Concomitant]
     Indication: CORONARY ARTERY DISEASE
  9. ALDACTONE [Concomitant]
     Dosage: UNK UKN, UNK

REACTIONS (4)
  - PRURITUS [None]
  - RENAL FAILURE ACUTE [None]
  - CARDIAC FAILURE [None]
  - HYPERKALAEMIA [None]
